FAERS Safety Report 7401804-3 (Version None)
Quarter: 2011Q2

REPORT INFORMATION
  Report Type: 
  Country: None (occurrence: None)
  Receive Date: 20110408
  Receipt Date: 20110404
  Transmission Date: 20111010
  Serious: No
  Sender: FDA-Public Use
  Company Number: US-PFIZER INC-2011074056

PATIENT
  Sex: Male

DRUGS (1)
  1. IBUPROFEN (ADVIL) [Suspect]
     Indication: BACK PAIN
     Dosage: 2 CAPSULES, ONCE
     Route: 048
     Dates: start: 20110402, end: 20110402

REACTIONS (2)
  - GLOSSODYNIA [None]
  - PRODUCT QUALITY ISSUE [None]
